FAERS Safety Report 9871437 (Version 1)
Quarter: 2014Q1

REPORT INFORMATION
  Report Type: Spontaneous
  Country: IT (occurrence: IT)
  Receive Date: 20140205
  Receipt Date: 20140205
  Transmission Date: 20141002
  Serious: Yes (Hospitalization)
  Sender: FDA-Public Use
  Company Number: PHHY2014IT013379

PATIENT
  Age: 81 Year
  Sex: Female

DRUGS (11)
  1. METFORMIN [Suspect]
     Indication: TYPE 2 DIABETES MELLITUS
     Dosage: 1500 MG, UNK
     Route: 048
     Dates: start: 20080501, end: 20130921
  2. AMLODIPINE [Suspect]
     Indication: HYPERTENSION
     Dosage: 10 MG, UNK
     Route: 048
  3. LATANOPROST [Suspect]
     Indication: GLAUCOMA
  4. HUMALOG [Suspect]
     Indication: TYPE 2 DIABETES MELLITUS
     Dosage: 22 U/L, QD
     Route: 058
     Dates: start: 20110101
  5. HUMALOG [Suspect]
     Dosage: 14 U/L, DAILY
  6. LANTUS [Suspect]
     Indication: TYPE 2 DIABETES MELLITUS
     Dosage: 22 U/L, QD
     Route: 058
     Dates: start: 20110101
  7. CARDIRENE [Concomitant]
     Dosage: 160 MG, UNK
     Route: 048
  8. AZARGA [Concomitant]
     Indication: GLAUCOMA
  9. ATORVASTATIN [Concomitant]
     Dosage: 40 MG, UNK
     Route: 048
  10. OMEPRAZOLE [Concomitant]
     Indication: PROPHYLAXIS
     Dosage: 20 MG, UNK
     Route: 048
  11. LISINOPRIL [Concomitant]
     Indication: HYPERTENSION
     Dosage: 20 MG, UNK
     Route: 048

REACTIONS (1)
  - Hypoglycaemic coma [Recovered/Resolved]
